FAERS Safety Report 14357126 (Version 1)
Quarter: 2018Q1

REPORT INFORMATION
  Report Type: Spontaneous
  Country: FR (occurrence: FR)
  Receive Date: 20180105
  Receipt Date: 20180105
  Transmission Date: 20180509
  Serious: Yes (Disabling)
  Sender: FDA-Public Use
  Company Number: FR-BAUSCH-BL-2017-036025

PATIENT
  Age: 76 Year
  Sex: Male
  Weight: 82 kg

DRUGS (4)
  1. OFLOXACINE [Suspect]
     Active Substance: OFLOXACIN
     Indication: URINARY TRACT INFECTION
     Route: 048
     Dates: start: 20170404, end: 20170414
  2. VELCADE 3.5 MG POWDER FOR SOLUTION FOR INJECTION [Concomitant]
     Indication: AMYLOIDOSIS
     Route: 042
     Dates: start: 20160819, end: 20170414
  3. ALKERAN [Concomitant]
     Active Substance: MELPHALAN
     Indication: AMYLOIDOSIS
     Route: 042
     Dates: start: 20160819, end: 20170414
  4. DEXAMETHASONE. [Suspect]
     Active Substance: DEXAMETHASONE
     Indication: AMYLOIDOSIS
     Route: 048
     Dates: start: 20160819, end: 20170414

REACTIONS (2)
  - Tendonitis [Recovered/Resolved]
  - Tendon injury [Recovered/Resolved]

NARRATIVE: CASE EVENT DATE: 20170411
